FAERS Safety Report 7117588-2 (Version None)
Quarter: 2010Q4

REPORT INFORMATION
  Report Type: 
  Country: None (occurrence: None)
  Receive Date: 20101122
  Receipt Date: 20101111
  Transmission Date: 20110411
  Serious: Yes (Other)
  Sender: FDA-Public Use
  Company Number: JP-AMGEN-JPNCT2010005591

PATIENT

DRUGS (13)
  1. PANITUMUMAB [Suspect]
     Indication: COLORECTAL CANCER
     Dosage: UNK
     Dates: start: 20100629
  2. ELPLAT [Suspect]
     Indication: COLORECTAL CANCER
     Route: 041
     Dates: start: 20100629, end: 20100727
  3. FLUOROURACIL [Suspect]
     Indication: COLORECTAL CANCER
     Route: 040
     Dates: start: 20100629, end: 20100727
  4. FLUOROURACIL [Suspect]
     Route: 041
     Dates: start: 20100629, end: 20100727
  5. FLUOROURACIL [Suspect]
     Route: 040
     Dates: start: 20100810, end: 20100907
  6. FLUOROURACIL [Suspect]
     Route: 041
     Dates: start: 20100810, end: 20100907
  7. CALCIUM LEVOFOLINATE [Concomitant]
     Indication: COLORECTAL CANCER
     Route: 041
     Dates: start: 20100629, end: 20100727
  8. CALCIUM LEVOFOLINATE [Concomitant]
     Route: 041
     Dates: start: 20100810, end: 20100907
  9. KYTRIL [Concomitant]
     Route: 042
  10. DECADRON [Concomitant]
     Route: 042
  11. CALCICOL [Concomitant]
     Route: 042
  12. MAGNESIUM SULFATE CORRECTIVE INJECTION [Concomitant]
     Route: 042
  13. ZOLADEX [Concomitant]
     Route: 042

REACTIONS (7)
  - DERMATITIS ACNEIFORM [None]
  - FLUSHING [None]
  - NASAL MUCOSAL DISORDER [None]
  - RASH [None]
  - RESPIRATORY DISORDER [None]
  - STOMATITIS [None]
  - URTICARIA [None]
